FAERS Safety Report 5406595-3 (Version None)
Quarter: 2007Q3

REPORT INFORMATION
  Report Type: 
  Country: None (occurrence: None)
  Receive Date: 20070806
  Receipt Date: 20070725
  Transmission Date: 20080115
  Serious: Yes (Life-Threatening, Hospitalization)
  Sender: FDA-Public Use
  Company Number: JP-PFIZER INC-2007058014

PATIENT
  Sex: Female

DRUGS (15)
  1. LIPITOR [Suspect]
     Indication: HYPERLIPIDAEMIA
     Dosage: DAILY DOSE:10MG
     Route: 048
  2. DRUG, UNSPECIFIED [Concomitant]
  3. TICLOPIDINE HCL [Concomitant]
     Route: 048
  4. ASPIRIN [Concomitant]
     Route: 048
  5. SERENACE [Concomitant]
     Route: 048
  6. GRAMALIL [Concomitant]
     Route: 048
  7. LANIRAPID [Concomitant]
     Route: 048
  8. DILTIAZEM HCL [Concomitant]
     Route: 048
  9. FRANDOL [Concomitant]
     Route: 048
  10. PRORENAL [Concomitant]
     Route: 048
  11. ROHYPNOL [Concomitant]
     Route: 048
  12. NOVOLIN N [Concomitant]
     Route: 058
  13. IRSOGLADINE MALEATE [Concomitant]
  14. ALDACTONE [Concomitant]
     Route: 048
  15. ALOSENN [Concomitant]
     Route: 048

REACTIONS (2)
  - RENAL DISORDER [None]
  - RHABDOMYOLYSIS [None]
